FAERS Safety Report 9548854 (Version 1)
Quarter: 2013Q3

REPORT INFORMATION
  Report Type: Spontaneous
  Country: US (occurrence: None)
  Receive Date: 20130719
  Receipt Date: 20130719
  Transmission Date: 20140515
  Serious: Yes (Hospitalization)
  Sender: FDA-Public Use
  Company Number: US-2013-10554

PATIENT
  Age: 67 Year
  Sex: Female

DRUGS (2)
  1. SAMSCA [Suspect]
     Indication: HYPONATRAEMIA
     Dosage: 15 MG MILLIGRAM(S), QD, UNKNOWN
     Dates: start: 201210, end: 201210
  2. IRON (ASCORBIC ACID, BETAINE HYDROCHLORIDE, COPPER, CYANOCOBALAMIN, FOLIC ACID, IRON, MANGANESE, NICOTINAMIDE, PYRIDOXINE HYDROCHLORIDE, RIBOFLAVIN, THIAMINE HYDROCHLORIDE) [Concomitant]
     Indication: HYPONATRAEMIA
     Dosage: 15 MG MILLIGRAM(S), QD, UNKNOWN
     Dates: start: 201210, end: 201210

REACTIONS (1)
  - Rapid correction of hyponatraemia [None]
